FAERS Safety Report 13176370 (Version 2)
Quarter: 2017Q1

REPORT INFORMATION
  Report Type: Spontaneous
  Country: PH (occurrence: PH)
  Receive Date: 20170201
  Receipt Date: 20170214
  Transmission Date: 20170428
  Serious: Yes (Life-Threatening)
  Sender: FDA-Public Use
  Company Number: PH-ABBVIE-17P-128-1860349-00

PATIENT
  Age: 31 Year
  Sex: Female

DRUGS (1)
  1. LUPROLEX [Suspect]
     Active Substance: LEUPROLIDE ACETATE
     Indication: LEIOMYOMA
     Dosage: 3.75 MG, MONTHLY
     Route: 058
     Dates: start: 20170121

REACTIONS (2)
  - Haemoglobin decreased [Recovering/Resolving]
  - Genital haemorrhage [Recovering/Resolving]

NARRATIVE: CASE EVENT DATE: 20170127
